FAERS Safety Report 20309319 (Version 4)
Quarter: 2022Q1

REPORT INFORMATION
  Report Type: Spontaneous
  Country: US (occurrence: US)
  Receive Date: 20220107
  Receipt Date: 20220120
  Transmission Date: 20220423
  Serious: Yes (Hospitalization, Other)
  Sender: FDA-Public Use
  Company Number: US-KARYOPHARM-2021KPT001655

PATIENT

DRUGS (2)
  1. XPOVIO [Suspect]
     Active Substance: SELINEXOR
     Indication: Plasma cell myeloma
     Dosage: 40 MG, 2X/WEEK
     Route: 048
     Dates: start: 20211220, end: 202112
  2. DEXAMETHASONE [Concomitant]
     Active Substance: DEXAMETHASONE
     Dosage: 25 MG, 2X/WEEK
     Dates: start: 20200107, end: 2022

REACTIONS (3)
  - Illness [Unknown]
  - Neoplasm [Unknown]
  - Asthenia [Unknown]

NARRATIVE: CASE EVENT DATE: 20211201
